FAERS Safety Report 4974359-0 (Version None)
Quarter: 2006Q2

REPORT INFORMATION
  Report Type: 
  Country: None (occurrence: None)
  Receive Date: 20060417
  Receipt Date: 20050308
  Transmission Date: 20061013
  Serious: Yes (Hospitalization)
  Sender: FDA-Public Use
  Company Number: US-MERCK-0503USA01351

PATIENT
  Age: 63 Year
  Sex: Male
  Weight: 104 kg

DRUGS (1)
  1. VIOXX [Suspect]
     Indication: BACK PAIN
     Route: 048
     Dates: start: 20020101, end: 20020301

REACTIONS (9)
  - ACUTE MYOCARDIAL INFARCTION [None]
  - ANXIETY [None]
  - BLOOD CHOLESTEROL INCREASED [None]
  - CARDIOVASCULAR DISORDER [None]
  - CONVULSION [None]
  - CORONARY ARTERY OCCLUSION [None]
  - LOW DENSITY LIPOPROTEIN INCREASED [None]
  - MYOCARDIAL INFARCTION [None]
  - SYNCOPE [None]
